FAERS Safety Report 5047217-3 (Version None)
Quarter: 2006Q3

REPORT INFORMATION
  Report Type: 
  Country: None (occurrence: None)
  Receive Date: 20060703
  Receipt Date: 20060628
  Transmission Date: 20061208
  Serious: Yes (Hospitalization)
  Sender: FDA-Public Use
  Company Number: 0600942US

PATIENT
  Age: 53 Year
  Sex: Female

DRUGS (5)
  1. ALESION TABLET (EPINASTINE HYDROCHLORIDE) TABLET, 10MG [Suspect]
     Indication: SEASONAL ALLERGY
     Dosage: 20 MG, QD, ORAL
     Route: 048
     Dates: start: 20060308, end: 20060401
  2. MEFENAMIC ACID [Suspect]
     Indication: TONSILLITIS
     Dosage: 750 MG, ORAL
     Route: 048
     Dates: start: 20060417, end: 20060420
  3. AMOXICILLIN [Suspect]
     Indication: TONSILLITIS
     Dosage: 750 MG, ORAL
     Route: 048
     Dates: start: 20060417, end: 20060420
  4. LYSOZYME HYDROCHLORIDE(LYSOZYME HYDROCHLORIDE) [Suspect]
     Indication: TONSILLITIS
     Dosage: 750 MG, ORAL
     Route: 048
     Dates: start: 20060417, end: 20060420
  5. NIPOLAZIN(MEQUITAZINE) [Suspect]
     Indication: SEASONAL ALLERGY
     Dosage: 6 MG, ORAL
     Route: 048
     Dates: start: 20060308, end: 20060401

REACTIONS (1)
  - PNEUMONIA [None]
